FAERS Safety Report 5326818-9 (Version None)
Quarter: 2007Q2

REPORT INFORMATION
  Report Type: 
  Country: None (occurrence: None)
  Receive Date: 20070516
  Receipt Date: 20070507
  Transmission Date: 20071010
  Serious: Yes (Hospitalization, Other)
  Sender: FDA-Public Use
  Company Number: HQWYE731203AUG04

PATIENT
  Sex: Female
  Weight: 61.29 kg

DRUGS (3)
  1. PREMPRO [Suspect]
  2. PROVERA [Suspect]
  3. PREMARIN [Suspect]

REACTIONS (7)
  - ANGINA UNSTABLE [None]
  - AORTIC VALVE SCLEROSIS [None]
  - BLOOD PRESSURE INCREASED [None]
  - BREAST CANCER [None]
  - BREAST CANCER FEMALE [None]
  - MYOCARDIAL INFARCTION [None]
  - OESTROGEN RECEPTOR ASSAY POSITIVE [None]
